FAERS Safety Report 6744455-6 (Version None)
Quarter: 2010Q2

REPORT INFORMATION
  Report Type: 
  Country: None (occurrence: None)
  Receive Date: 20100527
  Receipt Date: 20100517
  Transmission Date: 20101027
  Serious: Yes (Other)
  Sender: FDA-Public Use
  Company Number: FR-PFIZER INC-2010061296

PATIENT
  Age: 71 Year
  Sex: Female

DRUGS (7)
  1. LYRICA [Suspect]
     Indication: NEURALGIA
     Dosage: 150 MG, 1X/DAY
     Route: 048
     Dates: start: 20080101, end: 20100301
  2. TEGELINE [Suspect]
     Indication: NEUROPATHY PERIPHERAL
     Dosage: UNK
     Route: 042
     Dates: start: 20100301, end: 20100305
  3. CYMBALTA [Suspect]
     Indication: NEURALGIA
     Dosage: 60 MG, 1X/DAY
     Route: 048
     Dates: start: 20100301
  4. LUMIGAN [Concomitant]
     Dosage: UNK
     Dates: start: 20060101
  5. POVIDONE IODINE [Concomitant]
     Dosage: UNK
     Dates: start: 20060101
  6. CRESTOR [Concomitant]
     Dosage: 5 MG, UNK
     Route: 048
     Dates: start: 20070101
  7. PARACETAMOL [Concomitant]
     Dosage: 1 G, AS NEEDED

REACTIONS (3)
  - HYPERTENSIVE CRISIS [None]
  - NAUSEA [None]
  - VOMITING [None]
